FAERS Safety Report 13869300 (Version 2)
Quarter: 2018Q2

REPORT INFORMATION
  Report Type: Report from Study
  Country: US (occurrence: US)
  Receive Date: 20170815
  Receipt Date: 20180525
  Transmission Date: 20180711
  Serious: Yes (Death, Life-Threatening, Hospitalization, Other)
  Sender: FDA-Public Use
  Company Number: US-MYLANLABS-2017M1048916

PATIENT
  Age: 25 Year
  Sex: Female
  Weight: 51 kg

DRUGS (13)
  1. METHYLPREDNISOLONE. [Suspect]
     Active Substance: METHYLPREDNISOLONE
     Dosage: 20 MG, QD
     Route: 042
     Dates: start: 20170421, end: 20170421
  2. INVESTIGATIONAL DRUG [Suspect]
     Active Substance: INVESTIGATIONAL PRODUCT
     Dosage: 5 MG, BID
     Route: 048
     Dates: start: 20170427, end: 20170428
  3. METHYLPREDNISOLONE. [Suspect]
     Active Substance: METHYLPREDNISOLONE
     Dosage: 22.5 MG, BID
     Route: 042
     Dates: start: 20170421
  4. TACROLIMUS. [Concomitant]
     Active Substance: TACROLIMUS
     Indication: PRODUCT USED FOR UNKNOWN INDICATION
     Dosage: UNK
     Dates: start: 20170313
  5. METHYLPREDNISOLONE. [Suspect]
     Active Substance: METHYLPREDNISOLONE
     Dosage: 25 MG, QD
     Route: 042
     Dates: start: 20170422, end: 20170505
  6. PREDNISONE. [Suspect]
     Active Substance: PREDNISONE
     Dosage: 30 MG, BID
     Route: 048
     Dates: start: 20170404, end: 20170405
  7. INVESTIGATIONAL DRUG [Suspect]
     Active Substance: INVESTIGATIONAL PRODUCT
     Dosage: 10 MG, BID
     Route: 048
     Dates: start: 20170406, end: 20170426
  8. INVESTIGATIONAL DRUG [Suspect]
     Active Substance: INVESTIGATIONAL PRODUCT
     Indication: GRAFT VERSUS HOST DISEASE
     Dosage: 5 MG, BID
     Route: 048
     Dates: start: 20170317, end: 20170406
  9. PREDNISONE. [Suspect]
     Active Substance: PREDNISONE
     Dosage: 35 MG, QD
     Route: 048
     Dates: start: 20170327, end: 20170328
  10. PREDNISONE. [Suspect]
     Active Substance: PREDNISONE
     Dosage: 20 MG, BID
     Route: 048
     Dates: start: 20170329, end: 20170404
  11. PREDNISONE. [Suspect]
     Active Substance: PREDNISONE
     Indication: ACUTE GRAFT VERSUS HOST DISEASE
     Dosage: 35 MG, QD
     Route: 048
     Dates: start: 20170221
  12. INVESTIGATIONAL DRUG [Suspect]
     Active Substance: INVESTIGATIONAL PRODUCT
     Dosage: 5 MG, QD
     Route: 048
     Dates: start: 20170429, end: 20170430
  13. METHYLPREDNISOLONE. [Suspect]
     Active Substance: METHYLPREDNISOLONE
     Indication: ACUTE GRAFT VERSUS HOST DISEASE
     Dosage: 25 MG, BID
     Route: 042
     Dates: start: 20170405, end: 20170421

REACTIONS (5)
  - Diarrhoea [Recovering/Resolving]
  - Pyrexia [Recovering/Resolving]
  - Abdominal pain [Recovering/Resolving]
  - Pneumatosis intestinalis [Not Recovered/Not Resolved]
  - Graft versus host disease [Fatal]

NARRATIVE: CASE EVENT DATE: 20170404
